FAERS Safety Report 4474556-7 (Version None)
Quarter: 2004Q4

REPORT INFORMATION
  Report Type: 
  Country: None (occurrence: None)
  Receive Date: 20041012
  Receipt Date: 20040929
  Transmission Date: 20050328
  Serious: Yes (Life-Threatening, Hospitalization)
  Sender: FDA-Public Use
  Company Number: 2004050131

PATIENT
  Age: 92 Year
  Sex: Male
  Weight: 76 kg

DRUGS (6)
  1. ZOLOFT [Suspect]
     Indication: DEPRESSION
     Dosage: 1 IN 1 D  ORAL
     Route: 048
     Dates: start: 20040501, end: 20040101
  2. FUROSEMIDE [Concomitant]
  3. RAMIPRIL [Concomitant]
  4. NICORANDIL [Concomitant]
  5. ACETYLSALICYLATE LYSINE [Concomitant]
  6. NITROGLYCERIN [Concomitant]

REACTIONS (2)
  - NEPHROPATHY [None]
  - RENAL FAILURE [None]
